FAERS Safety Report 18643315 (Version 2)
Quarter: 2020Q4

REPORT INFORMATION
  Report Type: Spontaneous
  Country: KR (occurrence: KR)
  Receive Date: 20201221
  Receipt Date: 20201222
  Transmission Date: 20210114
  Serious: Yes (Death, Hospitalization, Other)
  Sender: FDA-Public Use
  Company Number: KR-CELGENEUS-KOR-20201205679

PATIENT
  Age: 44 Year
  Sex: Male

DRUGS (1)
  1. AZACITIDINE. [Suspect]
     Active Substance: AZACITIDINE
     Indication: PRODUCT USED FOR UNKNOWN INDICATION
     Dosage: 125 MILLIGRAM
     Route: 058
     Dates: start: 20170720, end: 20170728

REACTIONS (4)
  - Hepatic enzyme increased [Unknown]
  - Hypophosphataemia [Recovered/Resolved]
  - Bronchopulmonary aspergillosis [Fatal]
  - Pain in jaw [Recovered/Resolved]

NARRATIVE: CASE EVENT DATE: 20170823
